FAERS Safety Report 9437852 (Version 1)
Quarter: 2013Q3

REPORT INFORMATION
  Report Type: Report from Study
  Country: CA (occurrence: CA)
  Receive Date: 20130802
  Receipt Date: 20130802
  Transmission Date: 20140515
  Serious: Yes (Other)
  Sender: FDA-Public Use
  Company Number: CA-JNJFOC-20130717038

PATIENT
  Sex: Male
  Weight: 98 kg

DRUGS (2)
  1. REMICADE [Suspect]
     Indication: CROHN^S DISEASE
     Dosage: 1ST INFUSION
     Route: 042
     Dates: start: 20110201
  2. REMICADE [Suspect]
     Indication: CROHN^S DISEASE
     Dosage: 15TH INFUSION
     Route: 042
     Dates: start: 20130521

REACTIONS (4)
  - Umbilical hernia [Unknown]
  - Device related infection [Unknown]
  - Pneumonia [Unknown]
  - Pharyngitis [Unknown]
